FAERS Safety Report 9265068 (Version 5)
Quarter: 2014Q2

REPORT INFORMATION
  Report Type: Spontaneous
  Country: US (occurrence: US)
  Receive Date: 20130501
  Receipt Date: 20140407
  Transmission Date: 20141212
  Serious: Yes (Other)
  Sender: FDA-Public Use
  Company Number: US-ASTELLAS-2013US004445

PATIENT
  Age: 68 Year
  Sex: Female
  Weight: 76 kg

DRUGS (19)
  1. VESICARE [Suspect]
     Indication: HYPERTONIC BLADDER
     Dosage: 10 MG, UID/QD
     Route: 048
     Dates: start: 2011, end: 2013
  2. ADVAIR [Concomitant]
     Indication: CHRONIC OBSTRUCTIVE PULMONARY DISEASE
     Dosage: 1 PUFF TWICE DAILY
     Route: 048
  3. PROAIR                             /00139502/ [Concomitant]
     Indication: CHRONIC OBSTRUCTIVE PULMONARY DISEASE
     Dosage: 2 PUFFS TWICE DAILY
     Route: 048
  4. IMDUR [Concomitant]
     Indication: CARDIAC DISORDER
     Dosage: 60 MG, BID
     Route: 048
  5. CRESTOR [Concomitant]
     Indication: BLOOD CHOLESTEROL
     Dosage: 10 MG, UID/QD
     Route: 048
  6. NAVANE                             /00099101/ [Concomitant]
     Indication: EMOTIONAL DISORDER
     Dosage: 5 MG, UID/QD
     Route: 048
  7. LORTAB                             /00607101/ [Concomitant]
     Indication: PAIN
     Dosage: 5/500 MG, UNK
     Route: 048
  8. KLONOPIN [Concomitant]
     Indication: ANXIETY
     Dosage: 1 MG, QID
     Route: 048
  9. REMERON [Concomitant]
     Indication: DEPRESSION
     Dosage: 45 MG, QHS
     Route: 048
  10. REMERON [Concomitant]
     Dosage: 30 MG, UID/QD
     Route: 048
  11. TRAZODONE [Concomitant]
     Indication: SLEEP DISORDER THERAPY
     Dosage: 150 MG, QHS
     Route: 048
  12. ARTANE [Concomitant]
     Indication: ADVERSE DRUG REACTION
     Dosage: 4 MG, UID/QD
     Route: 048
  13. NITROGLYCERIN [Concomitant]
     Indication: CHEST PAIN
     Dosage: 0.4 MG, PRN
     Route: 048
  14. TRICOR                             /00090101/ [Concomitant]
     Indication: CARDIAC DISORDER
     Dosage: 145 MG, UID/QD
     Route: 048
  15. RANEXA [Concomitant]
     Indication: CARDIAC DISORDER
     Dosage: 500 MG, BID
     Route: 048
  16. HUMALOG [Concomitant]
     Indication: DIABETES MELLITUS
     Dosage: SLIDING SCALE
     Route: 065
  17. VITAMIN D                          /00107901/ [Concomitant]
     Indication: HYPOVITAMINOSIS
     Dosage: 50000 U, WEEKLY
     Route: 048
  18. POTASSIUM [Concomitant]
     Indication: HYPOVITAMINOSIS
     Dosage: 10 MG, UID/QD
     Route: 048
  19. ACETAMINOPHEN W/HYDROCODONE [Concomitant]
     Indication: PRODUCT USED FOR UNKNOWN INDICATION
     Dosage: UNK
     Route: 048

REACTIONS (4)
  - Foot fracture [Recovering/Resolving]
  - Haematoma [Recovered/Resolved]
  - Contusion [Recovered/Resolved]
  - Fall [Recovered/Resolved]
